FAERS Safety Report 6678269-2 (Version None)
Quarter: 2010Q2

REPORT INFORMATION
  Report Type: 
  Country: None (occurrence: None)
  Receive Date: 20100408
  Receipt Date: 20100408
  Transmission Date: 20101027
  Serious: Yes (Other)
  Sender: FDA-Public Use
  Company Number: None

PATIENT
  Sex: Female
  Weight: 81.1939 kg

DRUGS (2)
  1. LATISSE [Suspect]
     Indication: GROWTH OF EYELASHES
     Dosage: 1 NIGHTLY OPHTHALMIC
     Route: 047
     Dates: start: 20100402, end: 20100406
  2. ALLERGAN LATISSE [Concomitant]

REACTIONS (4)
  - EYE PRURITUS [None]
  - EYE SWELLING [None]
  - HYPERSENSITIVITY [None]
  - OCULAR HYPERAEMIA [None]
